FAERS Safety Report 5535391-1 (Version None)
Quarter: 2007Q4

REPORT INFORMATION
  Report Type: 
  Country: None (occurrence: None)
  Receive Date: 20071206
  Receipt Date: 20071127
  Transmission Date: 20080405
  Serious: Yes (Other)
  Sender: FDA-Public Use
  Company Number: FR-PFIZER INC-2007094676

PATIENT
  Sex: Female
  Weight: 55 kg

DRUGS (1)
  1. TRIFLUCAN [Suspect]
     Indication: VAGINAL CANDIDIASIS
     Route: 048
     Dates: start: 20071105, end: 20071107

REACTIONS (6)
  - EATING DISORDER [None]
  - GAIT DISTURBANCE [None]
  - HYPERREFLEXIA [None]
  - PAIN [None]
  - PHOTOPHOBIA [None]
  - VISUAL DISTURBANCE [None]
